FAERS Safety Report 5190520-7 (Version None)
Quarter: 2006Q4

REPORT INFORMATION
  Report Type: 
  Country: None (occurrence: None)
  Receive Date: 20061222
  Receipt Date: 20061217
  Transmission Date: 20070319
  Serious: Yes (Other)
  Sender: FDA-Public Use
  Company Number: DE-GLAXOSMITHKLINE-D0051807A

PATIENT
  Age: 50 Year
  Sex: Female

DRUGS (1)
  1. QUILONUM RETARD [Suspect]
     Route: 048

REACTIONS (7)
  - DIARRHOEA [None]
  - DRY MOUTH [None]
  - INTENTIONAL OVERDOSE [None]
  - NAUSEA [None]
  - SUICIDE ATTEMPT [None]
  - VISUAL DISTURBANCE [None]
  - VOMITING [None]
